FAERS Safety Report 9413601 (Version 1)
Quarter: 2013Q3

REPORT INFORMATION
  Report Type: Spontaneous
  Country: FR (occurrence: FR)
  Receive Date: 20130722
  Receipt Date: 20130722
  Transmission Date: 20140515
  Serious: Yes (Life-Threatening)
  Sender: FDA-Public Use
  Company Number: FR-ASTRAZENECA-2013SE52899

PATIENT
  Age: 22447 Day
  Sex: Female
  Weight: 90 kg

DRUGS (8)
  1. DIPRIVAN [Suspect]
     Indication: INDUCTION OF ANAESTHESIA
     Dosage: 200 MG + 50 MG ONCE
     Route: 042
     Dates: start: 20130626, end: 20130626
  2. CELOCURINE [Suspect]
     Indication: INDUCTION OF ANAESTHESIA
     Route: 042
     Dates: start: 20130626, end: 20130626
  3. SUFENTANIL MYLAN [Concomitant]
     Indication: INDUCTION OF ANAESTHESIA
     Route: 042
     Dates: start: 20130626, end: 20130626
  4. SUFENTANIL MYLAN [Concomitant]
     Indication: INDUCTION OF ANAESTHESIA
     Route: 042
     Dates: start: 20130628, end: 20130628
  5. AUGMENTIN [Concomitant]
  6. AUGMENTIN [Concomitant]
     Dates: start: 20130701
  7. BIPROFENID [Concomitant]
  8. PARACETAMOL [Concomitant]

REACTIONS (3)
  - Airway complication of anaesthesia [Recovered/Resolved]
  - Rash generalised [Recovered/Resolved]
  - Anaphylactic shock [Recovered/Resolved]
